FAERS Safety Report 4731367-2 (Version None)
Quarter: 2005Q3

REPORT INFORMATION
  Report Type: 
  Country: None (occurrence: None)
  Receive Date: 20050719
  Receipt Date: 20040517
  Transmission Date: 20060218
  Serious: Yes (Hospitalization)
  Sender: FDA-Public Use
  Company Number: 198318

PATIENT
  Age: 64 Year
  Sex: Female
  Weight: 52.1637 kg

DRUGS (5)
  1. AVONEX [Suspect]
     Indication: MULTIPLE SCLEROSIS
     Dosage: 30 UG; QW; IM
     Route: 030
     Dates: start: 19960601
  2. AVONEX [Suspect]
     Indication: MULTIPLE SCLEROSIS
     Dosage: IM
     Route: 030
  3. BACLOFEN [Concomitant]
  4. KLONOPIN [Concomitant]
  5. CYLERT [Concomitant]

REACTIONS (1)
  - MULTIPLE SCLEROSIS RELAPSE [None]
